FAERS Safety Report 20026726 (Version 2)
Quarter: 2021Q4

REPORT INFORMATION
  Report Type: Report from Study
  Country: CA (occurrence: CA)
  Receive Date: 20211102
  Receipt Date: 20211125
  Transmission Date: 20220304
  Serious: Yes (Hospitalization, Other)
  Sender: FDA-Public Use
  Company Number: CA-ABBVIE-21K-028-4144289-00

PATIENT
  Sex: Female
  Weight: 57.6 kg

DRUGS (2)
  1. VENCLEXTA [Suspect]
     Active Substance: VENETOCLAX
     Indication: Myelodysplastic syndrome
     Dosage: DAILY 14 DAYS THEN EVERY 20 DAYS
     Route: 048
     Dates: start: 20210805
  2. AZACITIDINE [Concomitant]
     Active Substance: AZACITIDINE
     Indication: Myelodysplastic syndrome
     Dosage: DAILY 5 DAYS THEN EVERY 25 DAYS
     Route: 058
     Dates: start: 20191007

REACTIONS (7)
  - Cerebrovascular accident [Unknown]
  - Thalamus haemorrhage [Unknown]
  - Feeling abnormal [Unknown]
  - Thrombocytopenia [Not Recovered/Not Resolved]
  - Nausea [Unknown]
  - Vomiting [Unknown]
  - Mobility decreased [Unknown]

NARRATIVE: CASE EVENT DATE: 20210101
